FAERS Safety Report 5847125-1 (Version None)
Quarter: 2008Q3

REPORT INFORMATION
  Report Type: 
  Country: None (occurrence: None)
  Receive Date: 20080815
  Receipt Date: 20080804
  Transmission Date: 20090109
  Serious: Yes (Hospitalization)
  Sender: FDA-Public Use
  Company Number: PHBS2008JP05389

PATIENT
  Age: 24 Year
  Sex: Female

DRUGS (1)
  1. INTERFERON BETA-1B [Suspect]
     Indication: MYELITIS

REACTIONS (14)
  - ANTIBODY TEST POSITIVE [None]
  - CARDIOLIPIN ANTIBODY [None]
  - CENTRAL NERVOUS SYSTEM LESION [None]
  - CONFUSIONAL STATE [None]
  - CSF PROTEIN INCREASED [None]
  - DYSARTHRIA [None]
  - EXTENSOR PLANTAR RESPONSE [None]
  - HEADACHE [None]
  - HICCUPS [None]
  - MUSCULAR WEAKNESS [None]
  - PAPILLOEDEMA [None]
  - PLEOCYTOSIS [None]
  - VISUAL ACUITY REDUCED [None]
  - VOMITING [None]
